FAERS Safety Report 19126407 (Version 1)
Quarter: 2021Q2

REPORT INFORMATION
  Report Type: Spontaneous
  Country: US (occurrence: US)
  Receive Date: 20210413
  Receipt Date: 20210413
  Transmission Date: 20210717
  Serious: No
  Sender: FDA-Public Use
  Company Number: US-ALLERGAN-1839767US

PATIENT

DRUGS (1)
  1. BIMATOPROST UNK [Suspect]
     Active Substance: BIMATOPROST
     Indication: PRODUCT USED FOR UNKNOWN INDICATION
     Dosage: UNK
     Route: 047

REACTIONS (5)
  - Dry skin [Unknown]
  - Swelling of eyelid [Unknown]
  - Skin irritation [Unknown]
  - Eyelid irritation [Unknown]
  - Periorbital swelling [Unknown]
